FAERS Safety Report 8583789-X (Version None)
Quarter: 2012Q3

REPORT INFORMATION
  Report Type: 
  Country: None (occurrence: None)
  Receive Date: 20120810
  Receipt Date: 20120730
  Transmission Date: 20120928
  Serious: Yes (Hospitalization, Other)
  Sender: FDA-Public Use
  Company Number: JP-009507513-1207JPN012867

PATIENT

DRUGS (5)
  1. TELAVIC [Suspect]
     Indication: HEPATITIS C
     Route: 048
     Dates: start: 20120702, end: 20120709
  2. TELAVIC [Suspect]
     Route: 048
     Dates: start: 20120710
  3. PEG-INTRON [Suspect]
     Indication: HEPATITIS C
     Dosage: 1.5MCG/KG/WEEK
     Route: 058
     Dates: start: 20120702
  4. REBETOL [Suspect]
     Route: 048
     Dates: start: 20120713
  5. REBETOL [Suspect]
     Indication: HEPATITIS C
     Route: 048
     Dates: start: 20120702, end: 20120712

REACTIONS (1)
  - JAUNDICE [None]
